FAERS Safety Report 7690693-8 (Version None)
Quarter: 2011Q3

REPORT INFORMATION
  Report Type: 
  Country: None (occurrence: None)
  Receive Date: 20110818
  Receipt Date: 20110811
  Transmission Date: 20111222
  Serious: Yes (Hospitalization, Other)
  Sender: FDA-Public Use
  Company Number: GB-BAYER-2011-064649

PATIENT
  Age: 22 Month
  Sex: Male

DRUGS (16)
  1. KOGENATE [Suspect]
     Indication: PROPHYLAXIS
     Dosage: 500 U, UNK
     Dates: start: 20110511, end: 20110523
  2. KOGENATE [Suspect]
     Dosage: DAILY DOSE 1500 IU
     Dates: start: 20110628, end: 20110628
  3. KOGENATE [Suspect]
     Dosage: DAILY DOSE 4500 IU
     Dates: start: 20110713, end: 20110713
  4. KOGENATE [Suspect]
     Dosage: DAILY DOSE 250 IU
     Dates: start: 20110519, end: 20110519
  5. KOGENATE [Suspect]
     Dosage: 250 IU, BID
     Dates: start: 20110524, end: 20110524
  6. KOGENATE [Suspect]
     Dosage: DAILY DOSE 500 IU
     Dates: start: 20110602, end: 20110602
  7. KOGENATE [Suspect]
     Dosage: DAILY DOSE 1500 IU
     Dates: start: 20110608, end: 20110608
  8. KOGENATE [Suspect]
     Dosage: DAILY DOSE 750 U
     Dates: start: 20110523, end: 20110523
  9. KOGENATE [Suspect]
     Dosage: 250 IU, TID
     Dates: start: 20110622, end: 20110622
  10. KOGENATE [Suspect]
     Dosage: DAILY DOSE 250 IU
     Dates: start: 20110715, end: 20110715
  11. KOGENATE [Suspect]
     Dosage: DAILY DOSE 2000 IU
     Dates: start: 20110803, end: 20110803
  12. KOGENATE [Suspect]
     Dosage: DAILY DOSE 500 IU
     Dates: start: 20110803, end: 20110803
  13. KOGENATE [Suspect]
     Dosage: 500 U, UNK
     Dates: start: 20110524, end: 20110525
  14. KOGENATE [Suspect]
     Dosage: DAILY DOSE 2250 IU
     Dates: start: 20110803, end: 20110803
  15. KOGENATE [Suspect]
     Indication: HAEMOPHILIA
     Dosage: 500 U, UNK
     Route: 040
     Dates: start: 20110508, end: 20110510
  16. KOGENATE [Suspect]
     Dosage: DAILY DOSE 1500 IU
     Dates: start: 20110713, end: 20110713

REACTIONS (4)
  - GASTROINTESTINAL HAEMORRHAGE [None]
  - FACTOR VIII INHIBITION [None]
  - INCREASED TENDENCY TO BRUISE [None]
  - HAEMORRHAGE SUBCUTANEOUS [None]
